FAERS Safety Report 9550203 (Version 1)
Quarter: 2013Q3

REPORT INFORMATION
  Report Type: Spontaneous
  Country: DZ (occurrence: DZ)
  Receive Date: 20130924
  Receipt Date: 20130924
  Transmission Date: 20140515
  Serious: Yes (Hospitalization)
  Sender: FDA-Public Use
  Company Number: DZ-ROCHE-1279711

PATIENT
  Age: 39 Year
  Sex: Female

DRUGS (2)
  1. AVASTIN [Suspect]
     Indication: BREAST CANCER METASTATIC
     Route: 042
     Dates: start: 2012, end: 2012
  2. GEMCITABINE [Suspect]
     Indication: BREAST CANCER METASTATIC
     Route: 042
     Dates: start: 2012, end: 2012

REACTIONS (2)
  - Haemoptysis [Recovered/Resolved]
  - Cancer surgery [Recovered/Resolved]
